FAERS Safety Report 19992194 (Version 1)
Quarter: 2021Q4

REPORT INFORMATION
  Report Type: Spontaneous
  Country: US (occurrence: US)
  Receive Date: 20211026
  Receipt Date: 20211026
  Transmission Date: 20220303
  Serious: Yes (Other)
  Sender: FDA-Public Use
  Company Number: US-BRACCO-2021US03550

PATIENT

DRUGS (1)
  1. VARIBAR THIN LIQUID [Suspect]
     Active Substance: BARIUM SULFATE
     Indication: X-ray
     Route: 048

REACTIONS (1)
  - Aspiration [Unknown]
